FAERS Safety Report 13209069 (Version 4)
Quarter: 2017Q1

REPORT INFORMATION
  Report Type: Report from Study
  Country: CZ (occurrence: CZ)
  Receive Date: 20170209
  Receipt Date: 20170317
  Transmission Date: 20170428
  Serious: Yes (Other)
  Sender: FDA-Public Use
  Company Number: CZ-BIOGEN-2017BI00353368

PATIENT
  Age: 53 Year
  Sex: Female
  Weight: 76 kg

DRUGS (6)
  1. BG00012 [Suspect]
     Active Substance: DIMETHYL FUMARATE
     Route: 048
     Dates: start: 20150622
  2. BISOPROLOL [Concomitant]
     Active Substance: BISOPROLOL
     Route: 065
  3. HELICID [Concomitant]
     Route: 065
  4. BG00012 [Suspect]
     Active Substance: DIMETHYL FUMARATE
     Indication: RELAPSING-REMITTING MULTIPLE SCLEROSIS
     Route: 048
     Dates: start: 20100531, end: 20150621
  5. MIRELLE [Concomitant]
     Indication: CHEMICAL CONTRACEPTION
     Route: 048
     Dates: start: 1991
  6. BISOPROLOL [Concomitant]
     Active Substance: BISOPROLOL
     Indication: TACHYCARDIA PAROXYSMAL
     Route: 048
     Dates: start: 20110315

REACTIONS (1)
  - Breast cancer [Not Recovered/Not Resolved]

NARRATIVE: CASE EVENT DATE: 20161205
